FAERS Safety Report 7645672-3 (Version None)
Quarter: 2011Q3

REPORT INFORMATION
  Report Type: 
  Country: None (occurrence: None)
  Receive Date: 20110729
  Receipt Date: 20110727
  Transmission Date: 20111222
  Serious: No
  Sender: FDA-Public Use
  Company Number: US-PFIZER INC-2011171673

PATIENT
  Age: 7 Year
  Sex: Female

DRUGS (1)
  1. CHILDREN'S ADVIL COLD [Suspect]
     Indication: PAIN IN EXTREMITY
     Dosage: UNK, AS NEEDED
     Route: 048

REACTIONS (1)
  - THROAT IRRITATION [None]
